FAERS Safety Report 10071127 (Version 1)
Quarter: 2014Q2

REPORT INFORMATION
  Report Type: Spontaneous
  Country: US (occurrence: US)
  Receive Date: 20140410
  Receipt Date: 20140410
  Transmission Date: 20141212
  Serious: No
  Sender: FDA-Public Use
  Company Number: US-BRISTOL-MYERS SQUIBB COMPANY-19641927

PATIENT
  Sex: 0

DRUGS (2)
  1. ETOPOPHOS [Suspect]
     Dosage: 1CC DOSE INJEC
  2. CARBOPLATIN [Suspect]
     Dosage: 1CC DOSE

REACTIONS (2)
  - Dyspnoea [Unknown]
  - Flushing [Unknown]
